FAERS Safety Report 15901554 (Version 1)
Quarter: 2019Q1

REPORT INFORMATION
  Report Type: Spontaneous
  Country: US (occurrence: US)
  Receive Date: 20190201
  Receipt Date: 20190201
  Transmission Date: 20190417
  Serious: No
  Sender: FDA-Public Use
  Company Number: None

PATIENT
  Age: 40 Year
  Sex: Female
  Weight: 63 kg

DRUGS (4)
  1. AIMOVIG [Suspect]
     Active Substance: ERENUMAB-AOOE
     Indication: MIGRAINE
     Dosage: ?          QUANTITY:2 INJECTION(S);OTHER FREQUENCY:1X MONTHLY;?
     Route: 055
     Dates: start: 20180601, end: 20180901
  2. CAMDESARTAN [Concomitant]
  3. BOTOX [Concomitant]
     Active Substance: ONABOTULINUMTOXINA
  4. NEUROLOGIST STIMULATOR [Concomitant]

REACTIONS (1)
  - Alopecia [None]
